FAERS Safety Report 20205575 (Version 1)
Quarter: 2021Q4

REPORT INFORMATION
  Report Type: Spontaneous
  Country: DK (occurrence: DK)
  Receive Date: 20211220
  Receipt Date: 20211220
  Transmission Date: 20220303
  Serious: Yes (Disabling)
  Sender: FDA-Public Use
  Company Number: None

PATIENT
  Age: 64 Year
  Sex: Male
  Weight: 68 kg

DRUGS (1)
  1. ACLASTA [Suspect]
     Active Substance: ZOLEDRONIC ACID
     Indication: Osteoporosis
     Dosage: UNK
     Route: 042
     Dates: start: 20210108

REACTIONS (21)
  - Ocular hyperaemia [Unknown]
  - Tinnitus [Not Recovered/Not Resolved]
  - Deafness unilateral [Recovering/Resolving]
  - Sleep disorder [Unknown]
  - Toothache [Unknown]
  - Heart rate irregular [Recovering/Resolving]
  - Joint swelling [Recovered/Resolved]
  - Musculoskeletal stiffness [Unknown]
  - Pain in extremity [Unknown]
  - Headache [Unknown]
  - Dizziness [Unknown]
  - Malaise [Unknown]
  - Pain in extremity [Unknown]
  - Neck pain [Unknown]
  - Oedema peripheral [Unknown]
  - Pain [Unknown]
  - Palpitations [Unknown]
  - Arthralgia [Unknown]
  - Pyrexia [Recovered/Resolved]
  - Ear pain [Unknown]
  - Nausea [Unknown]

NARRATIVE: CASE EVENT DATE: 20210101
